FAERS Safety Report 8801130 (Version 1)
Quarter: 2012Q4

REPORT INFORMATION
  Report Type: 
  Country: CO (occurrence: CO)
  Receive Date: 20120920
  Receipt Date: 20120920
  Transmission Date: 20130627
  Serious: Yes (Hospitalization)
  Sender: FDA-Public Use
  Company Number: CO-ROCHE-1130819

PATIENT
  Age: 7 Year
  Sex: Female

DRUGS (4)
  1. XOLAIR [Suspect]
     Indication: ASTHMA
     Route: 065
  2. SALBUTAMOL [Concomitant]
  3. SERETIDE [Concomitant]
  4. MONTELUKAST [Concomitant]

REACTIONS (2)
  - Asthmatic crisis [Recovering/Resolving]
  - Pyrexia [Recovering/Resolving]
